FAERS Safety Report 5239497-6 (Version None)
Quarter: 2007Q1

REPORT INFORMATION
  Report Type: 
  Country: None (occurrence: None)
  Receive Date: 20070214
  Receipt Date: 20070214
  Transmission Date: 20070707
  Serious: No
  Sender: FDA-Public Use
  Company Number: None

PATIENT
  Age: 9 Year
  Sex: Female
  Weight: 32.2054 kg

DRUGS (3)
  1. OXCARBAZEPINE [Suspect]
     Indication: BIPOLAR I DISORDER
     Dosage: 900 MG, 600 MG HS, AM PO
     Route: 048
  2. QUETIAPINE FUMARATE [Suspect]
     Dosage: 200 MG, 150 MG HS, AM PO
     Route: 048
     Dates: start: 20061220, end: 20070205
  3. DIVALPROEX SODIUM [Concomitant]

REACTIONS (1)
  - NEUTROPENIA [None]
